FAERS Safety Report 14974952 (Version 3)
Quarter: 2018Q2

REPORT INFORMATION
  Report Type: Report from Study
  Country: PE (occurrence: PE)
  Receive Date: 20180605
  Receipt Date: 20180612
  Transmission Date: 20180711
  Serious: Yes (Death, Hospitalization)
  Sender: FDA-Public Use
  Company Number: PE-JNJFOC-20180502654

PATIENT
  Age: 55 Year
  Sex: Male
  Weight: 76 kg

DRUGS (3)
  1. DARZALEX [Suspect]
     Active Substance: DARATUMUMAB
     Indication: PLASMA CELL MYELOMA
     Route: 042
     Dates: start: 20180328, end: 20180502
  2. BORTEZOMIB [Concomitant]
     Active Substance: BORTEZOMIB
     Indication: PLASMA CELL MYELOMA
     Route: 042
  3. DARZALEX [Suspect]
     Active Substance: DARATUMUMAB
     Indication: PLASMA CELL MYELOMA
     Route: 042
     Dates: start: 20180117

REACTIONS (7)
  - Inappropriate schedule of drug administration [Unknown]
  - Hypercalcaemia [Unknown]
  - Blood creatinine increased [Unknown]
  - Sepsis [Fatal]
  - Renal failure [Not Recovered/Not Resolved]
  - Leukopenia [Not Recovered/Not Resolved]
  - Off label use [Unknown]

NARRATIVE: CASE EVENT DATE: 20180503
